FAERS Safety Report 4531112-X (Version None)
Quarter: 2004Q4

REPORT INFORMATION
  Report Type: 
  Country: None (occurrence: None)
  Receive Date: 20041130
  Receipt Date: 20040213
  Transmission Date: 20050328
  Serious: Yes (Disabling)
  Sender: FDA-Public Use
  Company Number: WAES 00042372

PATIENT
  Age: 69 Year
  Sex: Female
  Weight: 62.5964 kg

DRUGS (3)
  1. FOSAMAX [Suspect]
     Indication: OSTEOPOROSIS
     Dosage: 10 MG/DAILY/PO; 70 MG/WKY/PO
     Route: 048
     Dates: start: 19990623, end: 19990701
  2. FOSAMAX [Suspect]
     Indication: OSTEOPOROSIS
     Dosage: 10 MG/DAILY/PO; 70 MG/WKY/PO
     Route: 048
     Dates: end: 20040201
  3. HYDROCHLOROTHIAZIDE (+) TRIAMTER [Concomitant]

REACTIONS (4)
  - ARTHRALGIA [None]
  - BACK PAIN [None]
  - DRY MOUTH [None]
  - PAIN IN EXTREMITY [None]
